FAERS Safety Report 9211829 (Version 3)
Quarter: 2014Q2

REPORT INFORMATION
  Report Type: Spontaneous
  Country: US (occurrence: US)
  Receive Date: 20130404
  Receipt Date: 20140409
  Transmission Date: 20141212
  Serious: Yes (Hospitalization, Other)
  Sender: FDA-Public Use
  Company Number: US-B.I. PHARMACEUTICALS,INC./RIDGEFIELD-2013-BI-09110BP

PATIENT
  Age: 61 Year
  Sex: Male
  Weight: 74.84 kg

DRUGS (12)
  1. PRADAXA [Suspect]
     Indication: ANTICOAGULANT THERAPY
     Dosage: 300 MG
     Route: 048
     Dates: start: 20110427, end: 20120313
  2. PRADAXA [Suspect]
     Indication: ATRIAL FIBRILLATION
  3. SOTALOL [Concomitant]
     Dosage: 160 MG
     Route: 048
  4. LASIX [Concomitant]
     Dosage: 40 MG
     Route: 048
  5. SPIRONOLACTONE [Concomitant]
     Dosage: 50 MG
     Route: 048
     Dates: start: 2003
  6. COREG [Concomitant]
     Dosage: 12.5 MG
     Route: 048
     Dates: start: 2003
  7. NOVOLOG [Concomitant]
     Dosage: 40 MG
     Route: 058
  8. JANUVIA [Concomitant]
     Dosage: 100 MG
     Route: 048
  9. ZOCOR [Concomitant]
     Dosage: 80 MG
     Route: 048
  10. MAGNESIUM OXIDE [Concomitant]
     Dosage: 800 MG
     Route: 048
  11. DIOVAN [Concomitant]
     Dosage: 40 MG
     Route: 048
  12. NITROGLYCERIN [Concomitant]
     Route: 061

REACTIONS (8)
  - Upper gastrointestinal haemorrhage [Unknown]
  - Pulmonary embolism [Unknown]
  - Anaemia [Unknown]
  - Flank pain [Unknown]
  - Haematuria [Unknown]
  - Cholelithiasis [Unknown]
  - Lobar pneumonia [Unknown]
  - Hypoglycaemia [Unknown]
